FAERS Safety Report 6940847-0 (Version None)
Quarter: 2010Q3

REPORT INFORMATION
  Report Type: 
  Country: None (occurrence: None)
  Receive Date: 20100825
  Receipt Date: 20100823
  Transmission Date: 20110219
  Serious: Yes (Other)
  Sender: FDA-Public Use
  Company Number: GXKR2009DE01921

PATIENT
  Age: 20 Year
  Sex: Female

DRUGS (1)
  1. ITRACONAZOLE SANDOZ (NGX) [Suspect]
     Dosage: 2 DF, QW
     Route: 048

REACTIONS (2)
  - ABORTION INDUCED [None]
  - DRUG EXPOSURE DURING PREGNANCY [None]
